FAERS Safety Report 11777482 (Version 1)
Quarter: 2015Q4

REPORT INFORMATION
  Report Type: Spontaneous
  Country: US (occurrence: US)
  Receive Date: 20151125
  Receipt Date: 20151125
  Transmission Date: 20160304
  Serious: No
  Sender: FDA-Public Use
  Company Number: US-TAKEDA-2015TUS016618

PATIENT
  Age: 35 Year
  Sex: Male
  Weight: 72.56 kg

DRUGS (1)
  1. DEXILANT [Suspect]
     Active Substance: DEXLANSOPRAZOLE
     Indication: OESOPHAGEAL DISORDER
     Dosage: 30 MG, QD
     Route: 048

REACTIONS (2)
  - Visual impairment [Unknown]
  - Eye swelling [Unknown]

NARRATIVE: CASE EVENT DATE: 2011
